FAERS Safety Report 9664535 (Version 1)
Quarter: 2013Q4

REPORT INFORMATION
  Report Type: Spontaneous
  Country: US (occurrence: US)
  Receive Date: 20131101
  Receipt Date: 20131101
  Transmission Date: 20140711
  Serious: No
  Sender: FDA-Public Use
  Company Number: US-BAYER-2013-130351

PATIENT
  Sex: Female

DRUGS (1)
  1. CLIMARA [Suspect]
     Indication: HOT FLUSH
     Dosage: 0.05 MG/DAY
     Route: 062
     Dates: start: 2003

REACTIONS (2)
  - Drug ineffective [None]
  - Product adhesion issue [None]
